FAERS Safety Report 11482971 (Version 1)
Quarter: 2015Q3

REPORT INFORMATION
  Report Type: Spontaneous
  Country: US (occurrence: None)
  Receive Date: 20150908
  Receipt Date: 20150908
  Transmission Date: 20151125
  Serious: Yes (Other)
  Sender: FDA-Public Use
  Company Number: None

PATIENT
  Age: 34 Year
  Sex: Male
  Weight: 72.58 kg

DRUGS (1)
  1. MODAFINIL 100MG [Suspect]
     Active Substance: MODAFINIL
     Indication: NARCOLEPSY
     Dosage: HALF TABLET
     Route: 048
     Dates: start: 20150904, end: 20150904

REACTIONS (5)
  - Heart rate increased [None]
  - Product formulation issue [None]
  - Delirium [None]
  - Pollakiuria [None]
  - Feeling abnormal [None]

NARRATIVE: CASE EVENT DATE: 20150904
